FAERS Safety Report 20542684 (Version 1)
Quarter: 2022Q1

REPORT INFORMATION
  Report Type: Spontaneous
  Country: US (occurrence: US)
  Receive Date: 20220302
  Receipt Date: 20220302
  Transmission Date: 20220423
  Serious: No
  Sender: FDA-Public Use
  Company Number: US-BoehringerIngelheim-2022-BI-157033

PATIENT
  Age: 73 Year

DRUGS (1)
  1. GLYXAMBI [Suspect]
     Active Substance: EMPAGLIFLOZIN\LINAGLIPTIN
     Indication: Product used for unknown indication
     Dosage: 25-5 MG
     Route: 048

REACTIONS (4)
  - Postoperative wound infection [Recovered/Resolved]
  - Cyst [Recovered/Resolved]
  - Impaired healing [Unknown]
  - COVID-19 [Unknown]

NARRATIVE: CASE EVENT DATE: 20211227
